FAERS Safety Report 23024439 (Version 1)
Quarter: 2023Q4

REPORT INFORMATION
  Report Type: Spontaneous
  Country: FR (occurrence: FR)
  Receive Date: 20231004
  Receipt Date: 20231004
  Transmission Date: 20240109
  Serious: Yes (Life-Threatening, Other)
  Sender: FDA-Public Use
  Company Number: None

PATIENT
  Age: 59 Year
  Sex: Female

DRUGS (8)
  1. KETOPROFEN [Suspect]
     Active Substance: KETOPROFEN
     Indication: Procedural pain
     Dosage: 100 MG
     Dates: start: 20230323, end: 20230323
  2. LIDOCAINE [Suspect]
     Active Substance: LIDOCAINE
     Indication: Local anaesthesia
     Dosage: UNK
     Dates: start: 20230323, end: 20230323
  3. DEXAMETHASONE [Suspect]
     Active Substance: DEXAMETHASONE
     Indication: Prophylaxis of nausea and vomiting
     Dosage: 1 DF
     Route: 065
     Dates: start: 20230323, end: 20230323
  4. SUFENTANIL [Suspect]
     Active Substance: SUFENTANIL
     Indication: Procedural pain
     Dosage: UNK
     Dates: start: 20230323, end: 20230323
  5. CEFAZOLIN [Suspect]
     Active Substance: CEFAZOLIN
     Indication: Prophylaxis
     Dosage: 2 G
     Dates: start: 20230323, end: 20230323
  6. ROCURONIUM [Concomitant]
     Active Substance: ROCURONIUM BROMIDE
     Dosage: UNK
  7. KETAMINE [Concomitant]
     Active Substance: KETAMINE
     Dosage: UNK
  8. PROPOFOL [Concomitant]
     Active Substance: PROPOFOL
     Dosage: UNK

REACTIONS (4)
  - Anaphylactic reaction [Recovered/Resolved]
  - Hypotension [Recovered/Resolved]
  - Oxygen saturation decreased [Recovered/Resolved with Sequelae]
  - Hypercapnia [Recovered/Resolved with Sequelae]
